FAERS Safety Report 7410443-X (Version None)
Quarter: 2011Q2

REPORT INFORMATION
  Report Type: 
  Country: None (occurrence: None)
  Receive Date: 20110413
  Receipt Date: 20110404
  Transmission Date: 20111010
  Serious: Yes (Hospitalization, Other)
  Sender: FDA-Public Use
  Company Number: GR-BIOGENIDEC-2010BI013022

PATIENT
  Age: 37 Year
  Sex: Male
  Weight: 68 kg

DRUGS (4)
  1. METHYLPREDNISOLONE [Concomitant]
     Indication: PROPHYLAXIS
     Route: 042
     Dates: start: 20100427, end: 20100501
  2. PREDNISOLONE [Concomitant]
     Indication: PROPHYLAXIS
     Route: 048
  3. TYSABRI [Suspect]
     Indication: RELAPSING-REMITTING MULTIPLE SCLEROSIS
     Route: 042
     Dates: start: 20080523, end: 20100308
  4. DITRUSOL [Concomitant]

REACTIONS (3)
  - EPILEPSY [None]
  - PROGRESSIVE MULTIFOCAL LEUKOENCEPHALOPATHY [None]
  - MULTIPLE SCLEROSIS RELAPSE [None]
